FAERS Safety Report 12664669 (Version 1)
Quarter: 2016Q3

REPORT INFORMATION
  Report Type: Spontaneous
  Country: DE (occurrence: DE)
  Receive Date: 20160818
  Receipt Date: 20160818
  Transmission Date: 20161109
  Serious: Yes (Other)
  Sender: FDA-Public Use
  Company Number: PHHY2016DE087286

PATIENT
  Sex: Male

DRUGS (4)
  1. IMMUNOSPORIN [Suspect]
     Active Substance: CYCLOSPORINE
     Indication: ECZEMA
     Dosage: 175 MG, QD
     Route: 048
     Dates: start: 20150811, end: 20160622
  2. IMMUNOSPORIN [Suspect]
     Active Substance: CYCLOSPORINE
     Indication: KERATOCONUS
     Dosage: 200 MG, QD
     Route: 048
     Dates: start: 20150518, end: 20150810
  3. IMMUNOSPORIN [Suspect]
     Active Substance: CYCLOSPORINE
     Dosage: 75MG RESPECTIVELY 100MG IN DAILY ROTATION
     Route: 065
     Dates: start: 20160623
  4. RAMILICH [Concomitant]
     Active Substance: RAMIPRIL
     Indication: HYPERTENSION
     Dosage: 5 MG, QD
     Route: 048
     Dates: start: 201510

REACTIONS (2)
  - Product use issue [Unknown]
  - Cystoid macular oedema [Recovering/Resolving]

NARRATIVE: CASE EVENT DATE: 20160622
